FAERS Safety Report 5024653-2 (Version None)
Quarter: 2006Q2

REPORT INFORMATION
  Report Type: 
  Country: None (occurrence: None)
  Receive Date: 20060613
  Receipt Date: 20060126
  Transmission Date: 20061013
  Serious: Yes (Other)
  Sender: FDA-Public Use
  Company Number: US-ROCHE-434095

PATIENT
  Age: 48 Year
  Sex: Female
  Weight: 101.6 kg

DRUGS (8)
  1. PEGASYS [Suspect]
     Route: 058
     Dates: start: 20050623, end: 20060601
  2. COPEGUS [Suspect]
     Route: 048
     Dates: start: 20050623
  3. RIBAVIRIN [Suspect]
     Route: 065
     Dates: end: 20060601
  4. ATENOLOL [Concomitant]
     Indication: HYPERTENSION
  5. PREVACID [Concomitant]
  6. PAXIL [Concomitant]
     Indication: DEPRESSION
  7. ZYBAN [Concomitant]
  8. BENADRYL [Concomitant]

REACTIONS (30)
  - ANAEMIA MACROCYTIC [None]
  - ANGINA PECTORIS [None]
  - ASTHMA [None]
  - CHEST PAIN [None]
  - DIVERTICULUM [None]
  - DIVERTICULUM INTESTINAL [None]
  - DRY MOUTH [None]
  - FATIGUE [None]
  - GASTRIC VARICES [None]
  - GASTROOESOPHAGEAL REFLUX DISEASE [None]
  - HAEMATURIA [None]
  - HEADACHE [None]
  - HIATUS HERNIA [None]
  - HYPERHIDROSIS [None]
  - HYPERPARATHYROIDISM [None]
  - HYPOCALCAEMIA [None]
  - HYPOGLYCAEMIA [None]
  - HYPOTHYROIDISM [None]
  - MICROLITHIASIS [None]
  - ORAL PAIN [None]
  - PERIPHERAL VASCULAR DISORDER [None]
  - PROTEIN URINE PRESENT [None]
  - PYELONEPHRITIS [None]
  - RASH [None]
  - RED BLOOD CELL COUNT INCREASED [None]
  - SPINAL DISORDER [None]
  - THYROID DISORDER [None]
  - VASCULAR CALCIFICATION [None]
  - VENTRICULAR HYPERTROPHY [None]
  - VITAMIN D DEFICIENCY [None]
